FAERS Safety Report 16932138 (Version 2)
Quarter: 2019Q4

REPORT INFORMATION
  Report Type: Spontaneous
  Country: SE (occurrence: SE)
  Receive Date: 20191017
  Receipt Date: 20191028
  Transmission Date: 20200122
  Serious: Yes (Life-Threatening, Disabling)
  Sender: FDA-Public Use
  Company Number: SE-ALLERGAN-1941472US

PATIENT
  Sex: Female
  Weight: 80 kg

DRUGS (1)
  1. BOTULINUM TOXIN TYPE A UNK [Suspect]
     Active Substance: BOTULINUM TOXIN TYPE A
     Indication: MUSCLE SPASTICITY
     Dosage: UNK, SINGLE
     Dates: start: 2018, end: 2018

REACTIONS (8)
  - Drooling [Recovered/Resolved with Sequelae]
  - Urinary incontinence [Recovered/Resolved with Sequelae]
  - Dysphagia [Recovered/Resolved with Sequelae]
  - Neck pain [Recovered/Resolved with Sequelae]
  - Dyspnoea [Recovered/Resolved with Sequelae]
  - Muscle spasms [Recovered/Resolved with Sequelae]
  - Musculoskeletal stiffness [Recovered/Resolved with Sequelae]
  - Condition aggravated [Recovered/Resolved with Sequelae]

NARRATIVE: CASE EVENT DATE: 201807
